FAERS Safety Report 4516941-0 (Version None)
Quarter: 2004Q4

REPORT INFORMATION
  Report Type: 
  Country: None (occurrence: None)
  Receive Date: 20041130
  Receipt Date: 20041115
  Transmission Date: 20050328
  Serious: Yes (Hospitalization)
  Sender: FDA-Public Use
  Company Number: 200410596BFR

PATIENT
  Age: 85 Year
  Sex: Female
  Weight: 70 kg

DRUGS (7)
  1. GLUCOR (ACARBOSE) [Suspect]
     Dosage: BID, ORAL
     Route: 048
     Dates: end: 20041015
  2. TAREG (VALSARTAN) [Suspect]
     Dosage: 80 MG, TOTAL DAILY, ORAL
     Route: 048
     Dates: end: 20041015
  3. LERCAN [Concomitant]
  4. ZYLORIC [Concomitant]
  5. PREVISCAN [Concomitant]
  6. CORDARONE [Concomitant]
  7. EUPRESSYL [Concomitant]

REACTIONS (10)
  - AGRANULOCYTOSIS [None]
  - DYSPNOEA [None]
  - HYPOCHROMIC ANAEMIA [None]
  - HYPOXIA [None]
  - INFLAMMATION [None]
  - LYMPHOPENIA [None]
  - NORMOCHROMIC NORMOCYTIC ANAEMIA [None]
  - PYREXIA [None]
  - RENAL FAILURE ACUTE [None]
  - TRANSAMINASES INCREASED [None]
